FAERS Safety Report 10181644 (Version 1)
Quarter: 2014Q2

REPORT INFORMATION
  Report Type: Spontaneous
  Country: US (occurrence: US)
  Receive Date: 20140519
  Receipt Date: 20140519
  Transmission Date: 20141212
  Serious: No
  Sender: FDA-Public Use
  Company Number: US-MYLANLABS-2013S1027458

PATIENT
  Age: 85 Year
  Sex: Female
  Weight: 52.16 kg

DRUGS (7)
  1. METHYLDOPA TABLETS [Suspect]
     Indication: BLOOD PRESSURE INCREASED
     Route: 048
     Dates: start: 20130515, end: 201305
  2. METHYLDOPA TABLETS [Suspect]
     Indication: BLOOD PRESSURE INCREASED
     Route: 048
     Dates: start: 201305
  3. METHYLDOPA TABLETS [Suspect]
     Indication: BLOOD PRESSURE INCREASED
     Route: 048
     Dates: start: 201305
  4. ASPIRIN [Concomitant]
  5. FLACHSOEL OMEGA-3-6-9 [Concomitant]
  6. VITAMIN B12 [Concomitant]
     Route: 060
  7. CALTRATE WITH VITAMIN D [Concomitant]

REACTIONS (2)
  - Alopecia [Not Recovered/Not Resolved]
  - Fatigue [Not Recovered/Not Resolved]
